FAERS Safety Report 4974780-0 (Version None)
Quarter: 2006Q2

REPORT INFORMATION
  Report Type: 
  Country: None (occurrence: None)
  Receive Date: 20060410
  Receipt Date: 20060328
  Transmission Date: 20061013
  Serious: Yes (Congenital Anomaly)
  Sender: FDA-Public Use
  Company Number: 13847

PATIENT
  Sex: Female

DRUGS (1)
  1. METHOTREXATE [Suspect]
     Indication: ABORTION INDUCED
     Dosage: 2.5 MG DAILY TL
     Route: 064

REACTIONS (8)
  - BRAIN MALFORMATION [None]
  - CONGENITAL HYPERTRICHOSIS [None]
  - DRUG EXPOSURE DURING PREGNANCY [None]
  - FOETAL DISORDER [None]
  - GROWTH OF EYELASHES [None]
  - GROWTH RETARDATION [None]
  - HOLOPROSENCEPHALY [None]
  - INTENTIONAL DRUG MISUSE [None]
